FAERS Safety Report 25946865 (Version 2)
Quarter: 2025Q4

REPORT INFORMATION
  Report Type: Spontaneous
  Country: JP (occurrence: JP)
  Receive Date: 20251022
  Receipt Date: 20251029
  Transmission Date: 20260118
  Serious: Yes (Death, Hospitalization, Other)
  Sender: ALEXION PHARMACEUTICALS
  Company Number: JP-ASTRAZENECA-202510JPN016047JP

PATIENT
  Age: 7 Decade
  Sex: Male
  Weight: 69 kg

DRUGS (2)
  1. IMFINZI [Suspect]
     Active Substance: DURVALUMAB
     Indication: Hepatocellular carcinoma
     Dosage: UNK
     Route: 065
  2. IMJUDO [Suspect]
     Active Substance: TREMELIMUMAB\TREMELIMUMAB-ACTL
     Indication: Hepatocellular carcinoma
     Dosage: UNK
     Route: 065

REACTIONS (8)
  - Death [Fatal]
  - Bile duct stenosis [Unknown]
  - Haemobilia [Unknown]
  - Cholangitis [Unknown]
  - Diarrhoea [Unknown]
  - Malaise [Unknown]
  - Decreased appetite [Unknown]
  - Pyrexia [Unknown]
